FAERS Safety Report 6917320-9 (Version None)
Quarter: 2010Q3

REPORT INFORMATION
  Report Type: 
  Country: None (occurrence: None)
  Receive Date: 20100721
  Receipt Date: 20100513
  Transmission Date: 20110219
  Serious: No
  Sender: FDA-Public Use
  Company Number: 2010AL000093

PATIENT
  Age: 23 Year
  Sex: Female

DRUGS (1)
  1. FOLOTYN [Suspect]
     Indication: PERIPHERAL T-CELL LYMPHOMA UNSPECIFIED
     Dosage: 59 MG;QOW;IV
     Route: 042
     Dates: start: 20100331, end: 20100427

REACTIONS (3)
  - FACE OEDEMA [None]
  - FOLLICULITIS [None]
  - OEDEMA PERIPHERAL [None]
